FAERS Safety Report 9664430 (Version 1)
Quarter: 2013Q4

REPORT INFORMATION
  Report Type: Spontaneous
  Country: US (occurrence: None)
  Receive Date: 20131030
  Receipt Date: 20131030
  Transmission Date: 20140711
  Serious: Yes (Hospitalization)
  Sender: FDA-Public Use
  Company Number: None

PATIENT
  Age: 70 Year
  Sex: Male
  Weight: 90 kg

DRUGS (9)
  1. XARELTO [Suspect]
     Indication: ATRIAL FIBRILLATION
     Route: 048
     Dates: start: 20131015, end: 20131020
  2. DILTIAZEM [Concomitant]
  3. FOLIC ACID [Concomitant]
  4. FUROSEMIDE [Concomitant]
  5. LISINOPRIL-HCTZ [Concomitant]
  6. FISH OIL [Concomitant]
  7. ORPHENADRINE [Concomitant]
  8. THIAMINE [Concomitant]
  9. TRAMADOL [Concomitant]

REACTIONS (1)
  - Deep vein thrombosis [None]
